FAERS Safety Report 13298857 (Version 4)
Quarter: 2017Q2

REPORT INFORMATION
  Report Type: Spontaneous
  Country: US (occurrence: US)
  Receive Date: 20170306
  Receipt Date: 20170605
  Transmission Date: 20170830
  Serious: No
  Sender: FDA-Public Use
  Company Number: US-PFIZER INC-2017095020

PATIENT
  Age: 82 Year
  Sex: Male

DRUGS (7)
  1. CHERATUSSIN [Concomitant]
     Active Substance: AMMONIUM CHLORIDE\DEXTROMETHORPHAN\SODIUM CITRATE
     Indication: COUGH
     Dosage: 5 ML, AS NEEDED (EVERY 6 HOURS, DO NOT EXCEED 4 DOSES IN 24 HOURS)
     Route: 048
  2. AZITHROMYCIN ANHYDROUS. [Concomitant]
     Active Substance: AZITHROMYCIN ANHYDROUS
     Dosage: 2 DF, DAILY
     Route: 048
  3. LYRICA [Suspect]
     Active Substance: PREGABALIN
     Indication: PAIN
     Dosage: 100 MG, DAILY
     Route: 048
     Dates: start: 20170413
  4. GABAPENTIN. [Concomitant]
     Active Substance: GABAPENTIN
     Dosage: 1 DF, DAILY (AT BEDTIME)
     Route: 048
  5. AMOX K CLAV [Concomitant]
     Dosage: 1 DF, 2X/DAY
     Route: 048
  6. DOXYCYCLINE MONOHYDRATE [Concomitant]
     Active Substance: DOXYCYCLINE
     Dosage: 1 DF, 2X/DAY
     Route: 048
  7. HYDROCODONE/ACETAMINOPHEN [Concomitant]
     Active Substance: ACETAMINOPHEN\HYDROCODONE
     Indication: PAIN
     Dosage: 1 DF, AS NEEDED (EVERY 8 HOURS)
     Route: 048

REACTIONS (2)
  - Pain [Not Recovered/Not Resolved]
  - Pain in extremity [Unknown]
